FAERS Safety Report 25248001 (Version 1)
Quarter: 2025Q2

REPORT INFORMATION
  Report Type: Spontaneous
  Country: OM (occurrence: OM)
  Receive Date: 20250429
  Receipt Date: 20250429
  Transmission Date: 20250717
  Serious: Yes (Hospitalization)
  Sender: ROCHE
  Company Number: OM-ROCHE-10000265226

PATIENT
  Age: 61 Year
  Sex: Male

DRUGS (1)
  1. LUNSUMIO [Suspect]
     Active Substance: MOSUNETUZUMAB-AXGB
     Indication: Follicular lymphoma
     Route: 065
     Dates: start: 202502

REACTIONS (7)
  - Pneumonia [Unknown]
  - Necrotising fasciitis [Unknown]
  - Enterococcal bacteraemia [Unknown]
  - Fungal infection [Unknown]
  - Cytokine release syndrome [Unknown]
  - Neutropenia [Unknown]
  - Septic shock [Unknown]
